FAERS Safety Report 17647231 (Version 10)
Quarter: 2021Q1

REPORT INFORMATION
  Report Type: Spontaneous
  Country: DE (occurrence: DE)
  Receive Date: 20200408
  Receipt Date: 20210305
  Transmission Date: 20210419
  Serious: Yes (Other)
  Sender: FDA-Public Use
  Company Number: DE-AUROBINDO-AUR-APL-2020-016912

PATIENT
  Sex: Female
  Weight: 82 kg

DRUGS (4)
  1. KISQALI [Suspect]
     Active Substance: RIBOCICLIB
     Indication: BREAST CANCER METASTATIC
     Dosage: 600 MILLIGRAM, CYCLICAL (SCHEMA 21 DAYS INTAKE THAN7 DAYS PAUSE)
     Route: 048
     Dates: start: 20200218, end: 20200524
  2. LETROZOLE. [Suspect]
     Active Substance: LETROZOLE
     Indication: BREAST CANCER METASTATIC
     Dosage: 2.5 MILLIGRAM, ONCE A DAY
     Route: 048
     Dates: start: 20200218
  3. KISQALI [Suspect]
     Active Substance: RIBOCICLIB
     Dosage: 600 MILLIGRAM, ONCE A DAY, (SCHEMA 21 DAYS INTAKE THAN7 DAYS PAUSE)
     Route: 048
     Dates: start: 20200603
  4. KISQALI [Suspect]
     Active Substance: RIBOCICLIB
     Dosage: 600 MILLIGRAM, ONCE A DAY ((SCHEMA 21 DAYS INTAKE THAN7 DAYS)
     Route: 048
     Dates: start: 20200218, end: 20200524

REACTIONS (9)
  - Malignant neoplasm progression [Unknown]
  - Fatigue [Unknown]
  - Back pain [Unknown]
  - Dyspnoea [Unknown]
  - Breast cancer metastatic [Unknown]
  - Electrocardiogram QT prolonged [Unknown]
  - Oedema [Unknown]
  - Arrhythmia [Recovering/Resolving]
  - Metastases to bone [Unknown]

NARRATIVE: CASE EVENT DATE: 20200311
